FAERS Safety Report 7413894-2 (Version None)
Quarter: 2011Q2

REPORT INFORMATION
  Report Type: 
  Country: None (occurrence: None)
  Receive Date: 20110414
  Receipt Date: 20110405
  Transmission Date: 20111010
  Serious: Yes (Hospitalization)
  Sender: FDA-Public Use
  Company Number: US-BIOGENIDEC-2011BI011176

PATIENT
  Age: 59 Year
  Sex: Female

DRUGS (16)
  1. TYSABRI [Suspect]
     Indication: PRODUCT USED FOR UNKNOWN INDICATION
     Route: 042
     Dates: start: 20090325, end: 20110124
  2. HYDROCHLOROTHIAZIDE [Concomitant]
     Route: 048
  3. SLIDING SCALE INSULIN [Concomitant]
     Indication: DIABETES MELLITUS
     Route: 058
     Dates: start: 20110301
  4. BISOPROLOL [Concomitant]
     Route: 048
  5. ASPIRIN [Concomitant]
     Route: 048
  6. SIMVASTATIN [Concomitant]
     Route: 048
  7. METFORMIN [Concomitant]
     Indication: DIABETES MELLITUS
     Route: 048
  8. XANAX [Concomitant]
     Indication: ANXIETY
     Route: 048
  9. MILK OF MAGNESIA TAB [Concomitant]
     Indication: CONSTIPATION
  10. CALCIUM [Concomitant]
     Route: 048
  11. DOCUSATE [Concomitant]
     Indication: CONSTIPATION
     Route: 048
  12. NEXIUM [Concomitant]
     Route: 048
  13. TIZANIDINE [Concomitant]
     Route: 048
  14. BISACODYL [Concomitant]
     Indication: CONSTIPATION
     Route: 048
  15. GLARGINE INSULIN [Concomitant]
     Indication: DIABETES MELLITUS
     Route: 058
     Dates: start: 20110301
  16. BACLOFEN [Concomitant]
     Route: 048

REACTIONS (2)
  - PROGRESSIVE MULTIFOCAL LEUKOENCEPHALOPATHY [None]
  - SUBCUTANEOUS HAEMATOMA [None]
